FAERS Safety Report 10184864 (Version 1)
Quarter: 2014Q2

REPORT INFORMATION
  Report Type: Spontaneous
  Country: US (occurrence: None)
  Receive Date: 20140520
  Receipt Date: 20140520
  Transmission Date: 20141212
  Serious: No
  Sender: FDA-Public Use
  Company Number: None

PATIENT
  Age: 79 Year
  Sex: Male

DRUGS (5)
  1. XELODA [Suspect]
     Indication: COLON CANCER
     Route: 048
     Dates: start: 20140405
  2. CAPECITABINE [Suspect]
     Indication: COLON CANCER
     Route: 048
     Dates: start: 20140405
  3. ZESTRIL [Concomitant]
  4. NYSTATIN [Concomitant]
  5. BENEDRYL [Concomitant]

REACTIONS (1)
  - Thrombosis [None]
